FAERS Safety Report 9331749 (Version 8)
Quarter: 2013Q4

REPORT INFORMATION
  Report Type: Report from Study
  Country: US (occurrence: US)
  Receive Date: 20130605
  Receipt Date: 20131017
  Transmission Date: 20140711
  Serious: Yes (Other)
  Sender: FDA-Public Use
  Company Number: US-VERTEX PHARMACEUTICALS INC-2013-006732

PATIENT
  Age: 69 Year
  Sex: Male
  Weight: 76 kg

DRUGS (3)
  1. VX-950 (TELAPREVIR) [Suspect]
     Indication: HEPATITIS C
     Dosage: 750 MG, TID
     Route: 048
     Dates: start: 20130524, end: 20130809
  2. PEGASYS [Suspect]
     Indication: HEPATITIS C
     Dosage: 180 ?G, QW
     Dates: start: 20130524, end: 20130809
  3. RIBAVIRIN [Suspect]
     Indication: HEPATITIS C
     Dosage: 400MG AM AND 600MG PM
     Dates: start: 20130524, end: 20130809

REACTIONS (11)
  - White blood cell count decreased [Not Recovered/Not Resolved]
  - Diarrhoea haemorrhagic [Recovered/Resolved]
  - Mouth cyst [Not Recovered/Not Resolved]
  - Oral pain [Not Recovered/Not Resolved]
  - Initial insomnia [Not Recovered/Not Resolved]
  - Tongue coated [Unknown]
  - Faeces discoloured [Not Recovered/Not Resolved]
  - Swelling face [Not Recovered/Not Resolved]
  - Oedema peripheral [Not Recovered/Not Resolved]
  - Rash maculo-papular [Recovered/Resolved]
  - Diarrhoea [Not Recovered/Not Resolved]
